FAERS Safety Report 6580715-X (Version None)
Quarter: 2010Q1

REPORT INFORMATION
  Report Type: 
  Country: None (occurrence: None)
  Receive Date: 20100212
  Receipt Date: 20100202
  Transmission Date: 20100710
  Serious: Yes (Other)
  Sender: FDA-Public Use
  Company Number: JP-MERCK-1002USA00543

PATIENT
  Age: 20 Year
  Sex: Male

DRUGS (4)
  1. ISENTRESS [Suspect]
     Dosage: DAILY DOSAGE UNKNOWN
     Route: 048
  2. RIFAMPIN [Suspect]
     Dosage: DAILY DOSAGE UNKNOWN
     Route: 048
  3. MYCOBUTIN [Suspect]
     Dosage: DAILY DOSAGE UNKNOWN
     Route: 048
  4. ANTIMICROBIAL (UNSPECIFIED) [Concomitant]
     Dosage: DAILY DOSAGE UNKNOWN
     Route: 065

REACTIONS (2)
  - DRUG INTERACTION [None]
  - PANCYTOPENIA [None]
